FAERS Safety Report 8185976-1 (Version None)
Quarter: 2012Q1

REPORT INFORMATION
  Report Type: 
  Country: None (occurrence: None)
  Receive Date: 20120305
  Receipt Date: 20120221
  Transmission Date: 20120608
  Serious: Yes (Other)
  Sender: FDA-Public Use
  Company Number: US-MYLANLABS-2012S1004139

PATIENT
  Age: 59 Year
  Sex: Female

DRUGS (9)
  1. LEUCOVORIN CALCIUM [Concomitant]
     Indication: COLON CANCER STAGE IV
     Dosage: RECEIVED NINE COURSES AS PART OF FOLFOX6 REGIMEN
     Route: 065
  2. BEVACIZUMAB [Concomitant]
     Indication: COLON CANCER STAGE IV
     Dosage: EIGHT COURSES
     Route: 065
  3. ANCEF /00288502/ [Concomitant]
     Route: 065
  4. DESFLURANE [Suspect]
     Indication: HEPATECTOMY
     Route: 065
  5. OXALIPLATIN [Suspect]
     Indication: COLON CANCER STAGE IV
     Dosage: RECEIVED TOTAL OF NINE COURSES AS PART OF FOLFOX6 REGIMEN
     Route: 065
  6. DIPRIVAN [Concomitant]
     Indication: HEPATECTOMY
     Route: 065
  7. FLUOROURACIL [Suspect]
     Indication: COLON CANCER STAGE IV
     Dosage: RECEIVED FIVE COURSES OF FLUOROURACIL BOLUS AS PART OF FOLFOX6 REGIMEN
     Route: 065
  8. REGLAN [Concomitant]
     Route: 065
  9. DECADRON [Concomitant]
     Route: 065

REACTIONS (2)
  - NEUTROPENIA [None]
  - INTERSTITIAL LUNG DISEASE [None]
